FAERS Safety Report 9434453 (Version 1)
Quarter: 2013Q3

REPORT INFORMATION
  Report Type: Spontaneous
  Country: US (occurrence: None)
  Receive Date: 20130731
  Receipt Date: 20130731
  Transmission Date: 20140515
  Serious: No
  Sender: FDA-Public Use
  Company Number: None

PATIENT
  Age: 48 Year
  Sex: Female

DRUGS (1)
  1. TECFIDERA [Suspect]
     Indication: MULTIPLE SCLEROSIS
     Dosage: 240MG   BID   PO
     Route: 048
     Dates: start: 20130715

REACTIONS (6)
  - Nausea [None]
  - Abdominal pain [None]
  - Vomiting [None]
  - Pyrexia [None]
  - Diarrhoea [None]
  - Urticaria [None]
